FAERS Safety Report 10006162 (Version 1)
Quarter: 2014Q1

REPORT INFORMATION
  Report Type: Report from Study
  Country: US (occurrence: US)
  Receive Date: 20140313
  Receipt Date: 20140313
  Transmission Date: 20141002
  Serious: Yes (Other)
  Sender: FDA-Public Use
  Company Number: US-ASTELLAS-2014US002440

PATIENT
  Age: 89 Year
  Sex: Male

DRUGS (6)
  1. ERLOTINIB TABLET [Suspect]
     Indication: LUNG NEOPLASM MALIGNANT
     Dosage: 150 MG, UID/QD
     Route: 048
     Dates: start: 20120509, end: 20120529
  2. ERLOTINIB TABLET [Suspect]
     Dosage: 150 MG, 1 IN 3 DAYS
     Route: 048
     Dates: start: 20120608
  3. ERLOTINIB TABLET [Suspect]
     Dosage: 150 MG, QOD
     Route: 048
     Dates: start: 20120725
  4. LEVOTHYROXIN [Concomitant]
     Indication: HYPOTHYROIDISM
     Dosage: 0.025 MG, UNKNOWN/D
     Route: 048
  5. TEMAZEPAM [Concomitant]
     Indication: INSOMNIA
     Dosage: 15 MG, UNKNOWN/D
     Route: 048
  6. MULTIVITAMIN                       /00097801/ [Concomitant]
     Indication: PRODUCT USED FOR UNKNOWN INDICATION
     Dosage: UNK
     Route: 065

REACTIONS (17)
  - Abdominal pain [Unknown]
  - Flatulence [Recovered/Resolved]
  - Muscle spasms [Recovered/Resolved]
  - Rash [Recovered/Resolved]
  - Flatulence [Recovering/Resolving]
  - Eructation [Not Recovered/Not Resolved]
  - Constipation [Recovering/Resolving]
  - Eructation [Unknown]
  - Vision blurred [Unknown]
  - Blood pressure increased [Unknown]
  - Anxiety [Unknown]
  - Hypophagia [Unknown]
  - Weight decreased [Unknown]
  - Rash [Unknown]
  - Rash [Unknown]
  - Acne [Unknown]
  - Pruritus [Unknown]
